FAERS Safety Report 10561957 (Version 1)
Quarter: 2014Q4

REPORT INFORMATION
  Report Type: Spontaneous
  Country: FR (occurrence: FR)
  Receive Date: 20141104
  Receipt Date: 20141104
  Transmission Date: 20150529
  Serious: Yes (Life-Threatening)
  Sender: FDA-Public Use
  Company Number: FR-ASTRAZENECA-2014SE81035

PATIENT
  Age: 30058 Day
  Sex: Female

DRUGS (13)
  1. TAREG [Concomitant]
     Active Substance: VALSARTAN
  2. PIASCLEDINE [Concomitant]
     Active Substance: AVOCADO OIL\SOYBEAN OIL
  3. AMIODARONE [Concomitant]
     Active Substance: AMIODARONE
  4. GENTALLINE [Concomitant]
     Active Substance: GENTAMICIN SULFATE
     Dates: start: 20130515
  5. ELISOR [Concomitant]
     Active Substance: PRAVASTATIN SODIUM
  6. CLAMOXYL [Concomitant]
     Active Substance: AMOXICILLIN\CLAVULANIC ACID
     Dates: start: 20130515
  7. DIPRIVAN [Suspect]
     Active Substance: PROPOFOL
     Indication: ANAESTHESIA
     Route: 042
     Dates: start: 20130515, end: 20130515
  8. SUFENTANIL [Suspect]
     Active Substance: SUFENTANIL
     Indication: ANAESTHESIA
     Route: 042
     Dates: start: 20130515, end: 20130515
  9. KARDEGIC [Concomitant]
     Active Substance: ASPIRIN LYSINE
  10. DEROXAT [Concomitant]
     Active Substance: PAROXETINE HYDROCHLORIDE
  11. TRACRIUM [Suspect]
     Active Substance: ATRACURIUM BESYLATE
     Indication: ANAESTHESIA
     Route: 042
     Dates: start: 20130515, end: 20130515
  12. FUROSEMIDE. [Concomitant]
     Active Substance: FUROSEMIDE
  13. INEXIUM [Concomitant]
     Active Substance: ESOMEPRAZOLE

REACTIONS (1)
  - Anaphylactic shock [Recovered/Resolved]

NARRATIVE: CASE EVENT DATE: 20140515
